FAERS Safety Report 16252654 (Version 3)
Quarter: 2019Q2

REPORT INFORMATION
  Report Type: Report from Study
  Country: US (occurrence: US)
  Receive Date: 20190429
  Receipt Date: 20190514
  Transmission Date: 20190711
  Serious: Yes (Death, Hospitalization)
  Sender: FDA-Public Use
  Company Number: US-UNITED THERAPEUTICS-UNT-2019-006146

PATIENT
  Age: 5 Year
  Sex: Male
  Weight: 20.2 kg

DRUGS (4)
  1. GM-CSF [Suspect]
     Active Substance: GRANULOCYTE-MACROPHAGE COLONY-STIMULATING FACTOR
     Indication: NEUROBLASTOMA RECURRENT
     Dosage: 210 ?G, UNK
     Route: 041
     Dates: start: 20190321
  2. IOBENGUANE (I131) [Suspect]
     Active Substance: IOBENGUANE I-131
     Indication: NEUROBLASTOMA RECURRENT
     Dosage: 252 MCI, QD
     Route: 041
     Dates: start: 20190314, end: 20190314
  3. DINUTUXIMAB [Suspect]
     Active Substance: DINUTUXIMAB
     Indication: NEUROBLASTOMA RECURRENT
     Dosage: 14.7 MG, QD
     Route: 041
     Dates: start: 20190321, end: 20190324
  4. POTASSIUM IODIDE. [Suspect]
     Active Substance: POTASSIUM IODIDE
     Indication: NEUROBLASTOMA RECURRENT
     Dosage: 20 MG, QD
     Route: 048
     Dates: start: 20190313

REACTIONS (4)
  - Spinal cord compression [Unknown]
  - Urinary retention [Unknown]
  - Tumour pain [Not Recovered/Not Resolved]
  - Disease progression [Fatal]

NARRATIVE: CASE EVENT DATE: 20190330
